FAERS Safety Report 7565913-0 (Version None)
Quarter: 2011Q2

REPORT INFORMATION
  Report Type: 
  Country: None (occurrence: None)
  Receive Date: 20110623
  Receipt Date: 20110608
  Transmission Date: 20111010
  Serious: Yes (Hospitalization, Congenital Anomaly, Other)
  Sender: FDA-Public Use
  Company Number: DE-MYLANLABS-2011S1011726

PATIENT
  Age: 0 Year
  Sex: Male
  Weight: 2.6 kg

DRUGS (6)
  1. FLUOXETINE HCL [Suspect]
     Indication: DEPRESSION
     Dosage: 40 [MG/D ]
     Route: 064
     Dates: start: 20090328, end: 20090612
  2. OMEPRAZOLE [Suspect]
     Indication: GASTRIC DISORDER
     Dosage: 40 [MG/D ]
     Route: 064
  3. HUMINSULIN NORMAL [Concomitant]
     Route: 064
     Dates: end: 20091218
  4. LYRICA [Suspect]
     Indication: TRIGEMINAL NEURALGIA
     Dosage: 550 [MG/D (150-400) ]
     Route: 064
     Dates: start: 20090328, end: 20090612
  5. FEMIBION [Concomitant]
     Dosage: 0.4 [MG/D ]
     Route: 064
  6. NOVALGIN [Suspect]
     Indication: PAIN
     Dosage: 2250 [MG/D ]
     Route: 064

REACTIONS (6)
  - CONGENITAL AORTIC VALVE STENOSIS [None]
  - ATRIAL SEPTAL DEFECT [None]
  - SMALL FOR DATES BABY [None]
  - CONGENITAL AORTIC VALVE INCOMPETENCE [None]
  - CYANOSIS NEONATAL [None]
  - DRUG EXPOSURE DURING PREGNANCY [None]
